FAERS Safety Report 5256993-6 (Version None)
Quarter: 2007Q1

REPORT INFORMATION
  Report Type: 
  Country: None (occurrence: None)
  Receive Date: 20070307
  Receipt Date: 20070228
  Transmission Date: 20070707
  Serious: Yes (Other)
  Sender: FDA-Public Use
  Company Number: 2007UW03924

PATIENT
  Age: 51 Year
  Sex: Female
  Weight: 83.9 kg

DRUGS (7)
  1. ARIMIDEX [Suspect]
     Indication: BREAST CANCER
     Route: 048
  2. ZOCOR [Suspect]
  3. LIPITOR [Suspect]
  4. ZETIA [Concomitant]
  5. TOPROL-XL [Concomitant]
  6. COUMADIN [Concomitant]
  7. NEURONTIN [Concomitant]

REACTIONS (3)
  - BLOOD CHOLESTEROL INCREASED [None]
  - HEPATIC ENZYME INCREASED [None]
  - WEIGHT INCREASED [None]
